FAERS Safety Report 13940659 (Version 1)
Quarter: 2017Q3

REPORT INFORMATION
  Report Type: Spontaneous
  Country: GR (occurrence: GR)
  Receive Date: 20170906
  Receipt Date: 20170906
  Transmission Date: 20171127
  Serious: Yes (Other)
  Sender: FDA-Public Use
  Company Number: GR-CELGENEUS-GRC-20170808445

PATIENT
  Age: 28 Year
  Sex: Female

DRUGS (1)
  1. THALIDOMIDE CELGENE [Suspect]
     Active Substance: THALIDOMIDE
     Indication: PRODUCT USED FOR UNKNOWN INDICATION
     Route: 048
     Dates: start: 201602, end: 201707

REACTIONS (1)
  - Human chorionic gonadotropin increased [Recovered/Resolved]

NARRATIVE: CASE EVENT DATE: 20170825
